FAERS Safety Report 8151953-X (Version None)
Quarter: 2012Q1

REPORT INFORMATION
  Report Type: 
  Country: None (occurrence: None)
  Receive Date: 20120221
  Receipt Date: 20120216
  Transmission Date: 20120608
  Serious: No
  Sender: FDA-Public Use
  Company Number: US-PFIZER INC-2012042514

PATIENT
  Sex: Female
  Weight: 68 kg

DRUGS (3)
  1. SUTENT [Suspect]
     Indication: NEOPLASM MALIGNANT
     Dosage: 12.5 MG, UNK
     Route: 048
     Dates: start: 20120116
  2. LISINOPRIL [Concomitant]
     Indication: HYPERTENSION
     Dosage: UNK
  3. GLUCOPHAGE [Concomitant]
     Indication: DIABETES MELLITUS
     Dosage: UNK

REACTIONS (3)
  - FATIGUE [None]
  - NERVOUSNESS [None]
  - FEELING JITTERY [None]
